FAERS Safety Report 18381170 (Version 2)
Quarter: 2020Q4

REPORT INFORMATION
  Report Type: Report from Study
  Country: PR (occurrence: PR)
  Receive Date: 20201014
  Receipt Date: 20201214
  Transmission Date: 20210114
  Serious: Yes (Death, Hospitalization)
  Sender: FDA-Public Use
  Company Number: PR-ROCHE-2695296

PATIENT
  Age: 58 Year
  Sex: Female
  Weight: 40.95 kg

DRUGS (5)
  1. VENETOCLAX. [Suspect]
     Active Substance: VENETOCLAX
     Indication: BREAST CANCER METASTATIC
     Dosage: MOST RECENT DOSE ON 21/SEP/2020.
     Route: 048
     Dates: start: 20200908
  2. TAMOXIFEN [Concomitant]
     Active Substance: TAMOXIFEN
     Indication: BREAST CANCER
     Dates: start: 2016, end: 2020
  3. CAPECITABINE. [Suspect]
     Active Substance: CAPECITABINE
     Indication: BREAST CANCER METASTATIC
     Dosage: MOST RECENT DOSE 21/SEP/2020.
     Route: 048
     Dates: start: 20200908
  4. VENETOCLAX. [Suspect]
     Active Substance: VENETOCLAX
     Indication: HORMONE RECEPTOR POSITIVE BREAST CANCER
  5. CAPECITABINE. [Suspect]
     Active Substance: CAPECITABINE
     Indication: HORMONE RECEPTOR POSITIVE BREAST CANCER

REACTIONS (1)
  - Diarrhoea haemorrhagic [Fatal]

NARRATIVE: CASE EVENT DATE: 20200921
